FAERS Safety Report 6634987-3 (Version None)
Quarter: 2010Q1

REPORT INFORMATION
  Report Type: 
  Country: None (occurrence: None)
  Receive Date: 20100315
  Receipt Date: 20100309
  Transmission Date: 20100710
  Serious: Yes (Hospitalization)
  Sender: FDA-Public Use
  Company Number: FR-SANOFI-AVENTIS-2010SA013152

PATIENT
  Age: 64 Year
  Sex: Male

DRUGS (15)
  1. AMIKACINE WINTHROP [Suspect]
     Indication: LUNG INFECTION
     Route: 042
     Dates: start: 20100113, end: 20100121
  2. LOVENOX [Suspect]
     Indication: DRUG USE FOR UNKNOWN INDICATION
     Route: 042
     Dates: start: 20100112, end: 20100113
  3. SOLUPRED [Suspect]
     Indication: DRUG USE FOR UNKNOWN INDICATION
     Route: 048
     Dates: start: 20100116
  4. OFLOCET [Suspect]
     Indication: LUNG INFECTION
     Route: 048
     Dates: start: 20100112, end: 20100113
  5. AMOXICILLIN AND CLAVULANATE POTASSIUM [Suspect]
     Indication: DRUG USE FOR UNKNOWN INDICATION
     Route: 048
     Dates: start: 20100112, end: 20100113
  6. IMIPENEM AND CILASTATIN SODIUM [Suspect]
     Indication: LUNG INFECTION
     Route: 042
     Dates: start: 20100113, end: 20100121
  7. ARIXTRA [Suspect]
     Indication: DRUG USE FOR UNKNOWN INDICATION
     Route: 058
     Dates: start: 20100113, end: 20100127
  8. ATARAX [Suspect]
     Indication: DRUG USE FOR UNKNOWN INDICATION
     Route: 048
     Dates: start: 20100116
  9. ESOMEPRAZOLE [Suspect]
     Indication: DRUG USE FOR UNKNOWN INDICATION
     Route: 048
     Dates: start: 20091201
  10. NORSET [Suspect]
     Indication: DRUG USE FOR UNKNOWN INDICATION
     Route: 048
     Dates: start: 20091201
  11. TARDYFERON /GFR/ [Suspect]
     Indication: DRUG USE FOR UNKNOWN INDICATION
     Route: 048
     Dates: start: 20091201
  12. ALIMTA [Concomitant]
     Indication: LUNG ADENOCARCINOMA
     Dates: start: 20090101
  13. CISPLATIN [Concomitant]
     Indication: LUNG ADENOCARCINOMA
     Dates: start: 20090101
  14. SKENAN [Concomitant]
     Indication: DRUG USE FOR UNKNOWN INDICATION
     Route: 048
  15. ACTISKENAN [Concomitant]
     Indication: DRUG USE FOR UNKNOWN INDICATION
     Route: 065

REACTIONS (2)
  - NEUTROPENIA [None]
  - PLATELET COUNT DECREASED [None]
